FAERS Safety Report 8335027-0 (Version None)
Quarter: 2012Q2

REPORT INFORMATION
  Report Type: 
  Country: None (occurrence: None)
  Receive Date: 20120503
  Receipt Date: 20100401
  Transmission Date: 20120825
  Serious: No
  Sender: FDA-Public Use
  Company Number: US-TEVA-2010001899

PATIENT
  Sex: Female

DRUGS (4)
  1. NUVIGIL [Suspect]
     Indication: SLEEP DISORDER
     Dosage: 150 MILLIGRAM;
     Route: 048
     Dates: start: 20100325, end: 20100326
  2. METROGEL [Concomitant]
     Indication: ROSACEA
  3. SEROQUEL [Concomitant]
     Indication: ANXIETY
     Dosage: 25 MILLIGRAM;
     Route: 048
     Dates: start: 20100101
  4. SERTRALINE HYDROCHLORIDE [Concomitant]
     Indication: ANXIETY
     Dosage: 100 MILLIGRAM;
     Route: 048
     Dates: start: 20100101

REACTIONS (2)
  - FEELING JITTERY [None]
  - INSOMNIA [None]
